FAERS Safety Report 9124617 (Version 2)
Quarter: 2013Q2

REPORT INFORMATION
  Report Type: Spontaneous
  Country: JP (occurrence: JP)
  Receive Date: 20130227
  Receipt Date: 20130425
  Transmission Date: 20140414
  Serious: Yes (Other)
  Sender: FDA-Public Use
  Company Number: JP-GILEAD-2012-0066703

PATIENT
  Age: 80 Year
  Sex: Female

DRUGS (4)
  1. HEPSERA [Suspect]
     Indication: CHRONIC HEPATITIS B
     Dosage: 10MG ALTERNATE DAYS
     Route: 048
     Dates: start: 20121208, end: 20130114
  2. HEPSERA [Suspect]
     Dosage: 10MG PER DAY
     Route: 048
     Dates: start: 20080609, end: 20121206
  3. LAMIVUDINE [Concomitant]
     Indication: CHRONIC HEPATITIS B
     Dosage: 100MG PER DAY
     Route: 048
     Dates: start: 20050408, end: 20130114
  4. ZEFIX [Concomitant]
     Indication: CHRONIC HEPATITIS B
     Dosage: 100MG PER DAY
     Route: 048
     Dates: start: 20050408, end: 20130114

REACTIONS (3)
  - Fanconi syndrome acquired [Recovering/Resolving]
  - Blood phosphorus abnormal [Unknown]
  - Blood alkaline phosphatase increased [Recovering/Resolving]
